FAERS Safety Report 4376403-0 (Version None)
Quarter: 2004Q2

REPORT INFORMATION
  Report Type: 
  Country: None (occurrence: None)
  Receive Date: 20040608
  Receipt Date: 20040601
  Transmission Date: 20050107
  Serious: Yes (Life-Threatening, Hospitalization)
  Sender: FDA-Public Use
  Company Number: 002#1#2004-00105

PATIENT
  Age: 75 Year
  Sex: Female
  Weight: 56.246 kg

DRUGS (4)
  1. PEG-3350-+-ELECTROLYTES-FOR-ORAL-SOLUTION (POLYETHYLENE GLYCOL 3350) [Suspect]
     Indication: COLONOSCOPY
     Dosage: 1ONCE, ORAL
     Route: 048
     Dates: start: 20040426, end: 20040426
  2. NEFAZODONE HCL [Concomitant]
  3. ZOLPIDEM TARTRATE [Concomitant]
  4. DIGESTIVE-ENZYMES [Concomitant]

REACTIONS (5)
  - ABASIA [None]
  - ASTHENIA [None]
  - CONFUSIONAL STATE [None]
  - HYPONATRAEMIA [None]
  - PHARMACEUTICAL PRODUCT COMPLAINT [None]
